FAERS Safety Report 9730924 (Version 2)
Quarter: 2014Q1

REPORT INFORMATION
  Report Type: Spontaneous
  Country: LU (occurrence: LU)
  Receive Date: 20131205
  Receipt Date: 20140219
  Transmission Date: 20141002
  Serious: Yes (Other)
  Sender: FDA-Public Use
  Company Number: LU-B.I. PHARMACEUTICALS,INC./RIDGEFIELD-2013-BI-39813BL

PATIENT
  Age: 63 Year
  Sex: Female

DRUGS (2)
  1. TRAJENTA [Suspect]
     Indication: DIABETES MELLITUS
     Dosage: 5 MG
     Dates: start: 2013, end: 201308
  2. INHIBITOR OF ANGIOTENSIN CONVERTING ENZYME [Suspect]
     Indication: ANGIOTENSIN CONVERTING ENZYME

REACTIONS (2)
  - Anaphylactic shock [Not Recovered/Not Resolved]
  - Angioedema [Not Recovered/Not Resolved]
